FAERS Safety Report 7522933-X (Version None)
Quarter: 2011Q2

REPORT INFORMATION
  Report Type: 
  Country: None (occurrence: None)
  Receive Date: 20110603
  Receipt Date: 20110602
  Transmission Date: 20111010
  Serious: Yes (Other)
  Sender: FDA-Public Use
  Company Number: US-AMGEN-USASP2011025271

PATIENT
  Age: 72 Year
  Sex: Female

DRUGS (7)
  1. NPLATE [Suspect]
     Indication: THROMBOCYTOPENIA
     Dosage: 10 A?G/KG, UNK
     Dates: start: 20110101
  2. NIFEDIAC [Concomitant]
  3. LEVOTHYROXINE SODIUM [Concomitant]
  4. AMICAR [Concomitant]
  5. LISINOPRIL [Concomitant]
  6. SIMVASTATIN [Concomitant]
  7. METOPROLOL TARTRATE [Concomitant]

REACTIONS (1)
  - PLATELET COUNT DECREASED [None]
